FAERS Safety Report 8385771-4 (Version None)
Quarter: 2012Q2

REPORT INFORMATION
  Report Type: 
  Country: None (occurrence: None)
  Receive Date: 20120523
  Receipt Date: 20120523
  Transmission Date: 20120825
  Serious: No
  Sender: FDA-Public Use
  Company Number: None

PATIENT
  Age: 31 Year
  Sex: Female
  Weight: 54.4316 kg

DRUGS (1)
  1. NITROFURANTOIN [Suspect]
     Indication: URINARY TRACT INFECTION
     Dosage: 100MG TWICE DAILY PO
     Route: 048
     Dates: start: 20120519, end: 20120521

REACTIONS (6)
  - CHILLS [None]
  - NAUSEA [None]
  - MIDDLE INSOMNIA [None]
  - DIZZINESS [None]
  - ABDOMINAL PAIN UPPER [None]
  - CHEST PAIN [None]
